FAERS Safety Report 8976109 (Version 4)
Quarter: 2013Q1

REPORT INFORMATION
  Report Type: Report from Study
  Country: US (occurrence: US)
  Receive Date: 20121220
  Receipt Date: 20130214
  Transmission Date: 20140127
  Serious: No
  Sender: FDA-Public Use
  Company Number: US-VERTEX PHARMACEUTICALS INC.-2012-026484

PATIENT
  Age: 59 Year
  Sex: Male
  Weight: 88 kg

DRUGS (8)
  1. VX-950 (TELAPREVIR) [Suspect]
     Indication: HEPATITIS C
     Dosage: 750 MG, TID
     Route: 048
  2. PEGINTRON [Suspect]
     Indication: HEPATITIS C
     Dosage: 150 UNK, UNK
     Route: 058
  3. RIBAVIRIN [Suspect]
     Indication: HEPATITIS C
     Dosage: 600 MG, UNK
     Route: 048
  4. LORAZEPAM [Concomitant]
     Dosage: 2 MG/ML, UNK
     Route: 048
  5. ALLEGRA-D [Concomitant]
     Dosage: UNK, BID
     Route: 048
  6. PRILOSEC [Concomitant]
     Dosage: 10 MG, UNK
     Route: 048
  7. ENSURE [Concomitant]
     Route: 048
  8. FLONASE [Concomitant]
     Dosage: SPR 0.05%

REACTIONS (4)
  - Injection site erythema [Not Recovered/Not Resolved]
  - Fatigue [Unknown]
  - Platelet count decreased [Unknown]
  - Diarrhoea [Unknown]
